FAERS Safety Report 5869433-0 (Version None)
Quarter: 2008Q3

REPORT INFORMATION
  Report Type: 
  Country: None (occurrence: None)
  Receive Date: 20080903
  Receipt Date: 20080826
  Transmission Date: 20090109
  Serious: Yes (Life-Threatening)
  Sender: FDA-Public Use
  Company Number: US-BOEHRINGER INGELHEIM GMBH, GERMANY-2008-BP-13661BP

PATIENT
  Sex: Male

DRUGS (5)
  1. SPIRIVA [Suspect]
     Route: 055
     Dates: start: 20080125
  2. ADVAIR DISKUS 100/50 [Concomitant]
  3. BENAZEPRIL HYDROCHLORIDE [Concomitant]
  4. NASONEX [Concomitant]
  5. BUPROPION SR [Concomitant]

REACTIONS (1)
  - DYSPNOEA [None]
